FAERS Safety Report 6785703-6 (Version None)
Quarter: 2010Q2

REPORT INFORMATION
  Report Type: 
  Country: None (occurrence: None)
  Receive Date: 20100621
  Receipt Date: 20100621
  Transmission Date: 20101027
  Serious: Yes (Other)
  Sender: FDA-Public Use
  Company Number: None

PATIENT
  Age: 67 Year
  Sex: Male
  Weight: 83.9154 kg

DRUGS (1)
  1. ZICAM NASAL SPRAY UNK [Suspect]
     Indication: SINUSITIS
     Dosage: 2 SPRAYS TWICE DAILY NASAL
     Route: 045
     Dates: start: 20100508, end: 20100520

REACTIONS (3)
  - AGEUSIA [None]
  - ANOSMIA [None]
  - PRODUCT QUALITY ISSUE [None]
